FAERS Safety Report 4863370-6 (Version None)
Quarter: 2005Q4

REPORT INFORMATION
  Report Type: 
  Country: None (occurrence: None)
  Receive Date: 20051222
  Receipt Date: 20041102
  Transmission Date: 20060501
  Serious: No
  Sender: FDA-Public Use
  Company Number: US-GLAXOSMITHKLINE-A0532244A

PATIENT
  Age: 34 Year
  Sex: Male

DRUGS (4)
  1. FLONASE [Suspect]
     Dosage: 4SPR PER DAY
     Route: 045
     Dates: start: 20041101
  2. LEVAQUIN [Concomitant]
  3. PREDNISONE TAB [Concomitant]
  4. PROTONIX [Concomitant]

REACTIONS (3)
  - FEELING JITTERY [None]
  - RHINITIS [None]
  - SNEEZING [None]
